FAERS Safety Report 18770442 (Version 2)
Quarter: 2021Q1

REPORT INFORMATION
  Report Type: Spontaneous
  Country: US (occurrence: US)
  Receive Date: 20210122
  Receipt Date: 20210127
  Transmission Date: 20210419
  Serious: Yes (Other)
  Sender: FDA-Public Use
  Company Number: US-SA-2021SA017827

PATIENT
  Age: 90 Year
  Sex: Female
  Weight: 83.46 kg

DRUGS (9)
  1. JANVIA [Concomitant]
     Indication: DIABETES MELLITUS
  2. PLAVIX [Suspect]
     Active Substance: CLOPIDOGREL BISULFATE
     Indication: STENT PLACEMENT
     Dosage: 75 MG
     Route: 048
     Dates: start: 2006
  3. TOPROL XL [Concomitant]
     Active Substance: METOPROLOL SUCCINATE
     Indication: BLOOD PRESSURE MEASUREMENT
     Dosage: UNK
     Route: 065
     Dates: start: 2006, end: 2006
  4. BABY ASPIRIN [Concomitant]
     Active Substance: ASPIRIN
     Route: 065
  5. NORVASC [Concomitant]
     Active Substance: AMLODIPINE BESYLATE
     Dosage: HALF PILL
  6. LIPITOR [Concomitant]
     Active Substance: ATORVASTATIN CALCIUM
     Route: 065
  7. DEXILANT [Concomitant]
     Active Substance: DEXLANSOPRAZOLE
     Indication: GASTRIC DISORDER
  8. JANVIA [Concomitant]
  9. XALATAN [Concomitant]
     Active Substance: LATANOPROST
     Indication: GLAUCOMA
     Dosage: 75 MG
     Route: 065

REACTIONS (5)
  - Diabetes mellitus [Unknown]
  - Biopsy stomach [Unknown]
  - Eye irritation [Unknown]
  - Glaucoma [Unknown]
  - Blood pressure increased [Recovered/Resolved]
